FAERS Safety Report 7768220-6 (Version None)
Quarter: 2011Q3

REPORT INFORMATION
  Report Type: 
  Country: None (occurrence: None)
  Receive Date: 20110922
  Receipt Date: 20110922
  Transmission Date: 20111222
  Serious: Yes (Hospitalization)
  Sender: FDA-Public Use
  Company Number: None

PATIENT
  Age: 68 Year
  Sex: Female
  Weight: 72.574 kg

DRUGS (1)
  1. AVELOX [Suspect]
     Indication: SINUSITIS
     Dosage: 1 TABLET
     Route: 048
     Dates: start: 20110901, end: 20110901

REACTIONS (7)
  - HEART RATE DECREASED [None]
  - BLOOD PRESSURE INCREASED [None]
  - URTICARIA [None]
  - GINGIVAL PAIN [None]
  - GENERALISED ERYTHEMA [None]
  - DYSPNOEA [None]
  - DRUG HYPERSENSITIVITY [None]
